FAERS Safety Report 4461363-4 (Version None)
Quarter: 2004Q3

REPORT INFORMATION
  Report Type: 
  Country: None (occurrence: None)
  Receive Date: 20040928
  Receipt Date: 20021106
  Transmission Date: 20050211
  Serious: Yes (Hospitalization)
  Sender: FDA-Public Use
  Company Number: PHHO2002US09110

PATIENT
  Age: 1 Day
  Sex: Female

DRUGS (1)
  1. TEGASEROD VS PLACEBO [Suspect]
     Indication: CONSTIPATION
     Route: 064

REACTIONS (5)
  - ABDOMINAL DISTENSION [None]
  - BLOOD BILIRUBIN INCREASED [None]
  - DRUG EXPOSURE DURING PREGNANCY [None]
  - JAUNDICE [None]
  - VOMITING [None]
